FAERS Safety Report 9190012 (Version 1)
Quarter: 2013Q1

REPORT INFORMATION
  Report Type: Spontaneous
  Country: IT (occurrence: None)
  Receive Date: 20130322
  Receipt Date: 20130322
  Transmission Date: 20140127
  Serious: Yes (Other)
  Sender: FDA-Public Use
  Company Number: IT-ALKEM-000024

PATIENT
  Age: 37 Year
  Sex: Male

DRUGS (2)
  1. QUETIAPINE (QUETIAPINE) (QUETIAPINE) [Suspect]
     Indication: INSOMNIA
  2. OXCARBAZEPINE (OXCARBAZEPINE ) [Concomitant]

REACTIONS (2)
  - Somnambulism [None]
  - Sleep-related eating disorder [None]
